FAERS Safety Report 6850014-7 (Version None)
Quarter: 2010Q3

REPORT INFORMATION
  Report Type: 
  Country: None (occurrence: None)
  Receive Date: 20100716
  Receipt Date: 20071009
  Transmission Date: 20110219
  Serious: No
  Sender: FDA-Public Use
  Company Number: US-PFIZER INC-2007085464

PATIENT
  Sex: Female
  Weight: 86.363 kg

DRUGS (15)
  1. CHANTIX [Suspect]
     Indication: SMOKING CESSATION THERAPY
     Dates: start: 20070401
  2. FLONASE [Concomitant]
     Route: 045
  3. VIVELLE-DOT [Concomitant]
     Indication: BLOOD OESTROGEN ABNORMAL
  4. PREVACID [Concomitant]
  5. LIPITOR [Concomitant]
  6. ADVAIR DISKUS 100/50 [Concomitant]
  7. HYDROCHLOROTHIAZIDE [Concomitant]
  8. POTASSIUM CHLORIDE [Concomitant]
  9. IBUPROFEN [Concomitant]
  10. SKELAXIN [Concomitant]
  11. ALBUTEROL [Concomitant]
  12. DUONEB [Concomitant]
  13. COMBIVENT [Concomitant]
     Route: 055
  14. LORAZEPAM [Concomitant]
  15. OXYCODONE HCL [Concomitant]

REACTIONS (2)
  - ABDOMINAL DISCOMFORT [None]
  - NAUSEA [None]
